FAERS Safety Report 7367540-7 (Version None)
Quarter: 2011Q1

REPORT INFORMATION
  Report Type: 
  Country: None (occurrence: None)
  Receive Date: 20110311
  Receipt Date: 20110225
  Transmission Date: 20110831
  Serious: Yes (Death, Hospitalization)
  Sender: FDA-Public Use
  Company Number: 2011MA001857

PATIENT
  Age: 57 Year
  Sex: Female

DRUGS (2)
  1. SLEEPING PILLS [Concomitant]
  2. NIFEDIPINE [Suspect]
     Dosage: PO
     Route: 048

REACTIONS (17)
  - SYNCOPE [None]
  - METABOLIC ACIDOSIS [None]
  - LARGE INTESTINE PERFORATION [None]
  - INTESTINAL ISCHAEMIA [None]
  - INTESTINAL DILATATION [None]
  - SHOCK [None]
  - HAEMODIALYSIS [None]
  - OVERDOSE [None]
  - HYPERGLYCAEMIA [None]
  - ACUTE RESPIRATORY DISTRESS SYNDROME [None]
  - SMALL INTESTINE GANGRENE [None]
  - BLOODY PERITONEAL EFFLUENT [None]
  - ACUTE MYOCARDIAL INFARCTION [None]
  - RENAL IMPAIRMENT [None]
  - GENERAL PHYSICAL HEALTH DETERIORATION [None]
  - COLON GANGRENE [None]
  - PNEUMONIA [None]
